FAERS Safety Report 8826568 (Version 2)
Quarter: 2013Q1

REPORT INFORMATION
  Report Type: Spontaneous
  Country: FR (occurrence: FR)
  Receive Date: 20121005
  Receipt Date: 20130115
  Transmission Date: 20140127
  Serious: Yes (Hospitalization)
  Sender: FDA-Public Use
  Company Number: PHHY2012FR085060

PATIENT
  Age: 61 Year
  Sex: Male

DRUGS (23)
  1. LOXEN LP [Suspect]
     Indication: HYPERTENSION
     Dosage: 2 DF, DAILY
  2. DOXORUBICIN [Suspect]
     Indication: LYMPHOMA
     Dosage: 83 MG, UNK
     Route: 042
     Dates: start: 20120620
  3. DOXORUBICIN [Suspect]
     Dosage: UNK UKN, UNK
     Route: 042
     Dates: start: 20120713
  4. ZELITREX [Suspect]
     Dosage: 2 DF, DAILY
     Route: 048
  5. BACTRIM [Suspect]
     Indication: PROPHYLAXIS
     Dosage: 1 DF, (MONDAY, WEDNESDAY AND FRIDAY)
     Route: 048
  6. SPECIAFOLDINE [Suspect]
     Indication: VITAMIN SUPPLEMENTATION
     Dosage: 1 DF, DAILY
     Route: 048
  7. ZYLORIC [Suspect]
     Indication: GOUT
     Dosage: 1 DF, (200 MG), DAILY
     Route: 048
  8. ZYLORIC [Suspect]
     Dosage: 1 DF, (300 MG), DAILY
     Route: 048
  9. CORTANCYL [Suspect]
     Dosage: UNK UKN, UNK
     Dates: start: 20120622, end: 20120630
  10. GRANOCYTE [Suspect]
     Dosage: 1 DF, DAILY
     Route: 058
     Dates: start: 20120625, end: 20120630
  11. GRANOCYTE [Suspect]
     Dosage: 1 DF, DAILY
     Route: 058
     Dates: start: 20120815, end: 20120820
  12. ARANESP [Suspect]
     Indication: ANAEMIA
     Dosage: 1 DF, EVERY 3 WEEKS
  13. MABTHERA [Suspect]
     Indication: LYMPHOMA
     Dosage: 623 MG, UNK
     Route: 042
     Dates: start: 20120620
  14. MABTHERA [Suspect]
     Dosage: UNK UKN, UNK
     Route: 042
     Dates: start: 20120713
  15. ENDOXAN [Suspect]
     Indication: LYMPHOMA
     Dosage: 1250 MG, UNK
     Route: 042
     Dates: start: 20120620
  16. ENDOXAN [Suspect]
     Dosage: UNK UKN, UNK
     Route: 042
     Dates: start: 20120713
  17. VINCRISTINE [Suspect]
     Indication: LYMPHOMA
     Dosage: 1 DF, (2MG / 2ML )
     Route: 042
     Dates: start: 20120620
  18. VINCRISTINE [Suspect]
     Dosage: UNK UKN, UNK
     Route: 042
     Dates: start: 20120713
  19. METHYLPREDNISOLONE [Suspect]
     Dosage: 1 DF, UNK
     Route: 042
     Dates: start: 20120620
  20. ZOPHREN [Suspect]
     Dosage: 8 MG/4L (1 DF))
     Route: 042
     Dates: start: 20120620
  21. UROMITEXAN [Suspect]
     Dosage: 830 MG, UNK
     Route: 042
     Dates: start: 20120620
  22. POLARAMINE [Suspect]
     Indication: HYPERSENSITIVITY
     Dosage: 1 DF, UNK
     Route: 048
  23. POLARAMINE [Suspect]
     Route: 042

REACTIONS (6)
  - Neuropathy peripheral [Not Recovered/Not Resolved]
  - Hypokinesia [Unknown]
  - Gait disturbance [Unknown]
  - Amyotrophy [Unknown]
  - Nerve injury [Unknown]
  - Hyporeflexia [Unknown]
